FAERS Safety Report 21382580 (Version 1)
Quarter: 2022Q3

REPORT INFORMATION
  Report Type: Other
  Country: US (occurrence: None)
  Receive Date: 20220927
  Receipt Date: 20220927
  Transmission Date: 20221027
  Serious: Yes (Hospitalization, Other)
  Sender: FDA-Public Use
  Company Number: US-ROCHE-3180199

PATIENT
  Sex: Female

DRUGS (15)
  1. OCREVUS [Suspect]
     Active Substance: OCRELIZUMAB
     Indication: Multiple sclerosis
     Dosage: YES, 300MG ON DAY1 AND DAY15 THEN 600MG, EVERY 6 MONTH
     Route: 042
     Dates: start: 2021
  2. ELIQUIS [Concomitant]
     Active Substance: APIXABAN
  3. BACLOFEN [Concomitant]
     Active Substance: BACLOFEN
  4. DANTROLENE [Concomitant]
     Active Substance: DANTROLENE
  5. LEVETIRACETAM [Concomitant]
     Active Substance: LEVETIRACETAM
  6. OXCARBAZEPINE [Concomitant]
     Active Substance: OXCARBAZEPINE
  7. AMLODIPINE [Concomitant]
     Active Substance: AMLODIPINE BESYLATE
  8. WELLBUTRIN [Concomitant]
     Active Substance: BUPROPION HYDROCHLORIDE
  9. MECLIZINE [Concomitant]
     Active Substance: MECLIZINE HYDROCHLORIDE
  10. LASIX [Concomitant]
     Active Substance: FUROSEMIDE
  11. VALERIAN [Concomitant]
     Active Substance: VALERIAN
  12. ALPHAGAN P [Concomitant]
     Active Substance: BRIMONIDINE TARTRATE
  13. TIMOLOL [Concomitant]
     Active Substance: TIMOLOL
  14. DEXAMETHASONE\TOBRAMYCIN [Concomitant]
     Active Substance: DEXAMETHASONE\TOBRAMYCIN
  15. BELBUCA [Concomitant]
     Active Substance: BUPRENORPHINE HYDROCHLORIDE

REACTIONS (7)
  - Rectal abscess [Recovered/Resolved with Sequelae]
  - Spinal disorder [Unknown]
  - Seizure [Unknown]
  - Blepharitis [Not Recovered/Not Resolved]
  - Neuralgia [Unknown]
  - Memory impairment [Unknown]
  - Demyelination [Unknown]

NARRATIVE: CASE EVENT DATE: 20210101
